FAERS Safety Report 6456175-6 (Version None)
Quarter: 2009Q4

REPORT INFORMATION
  Report Type: 
  Country: None (occurrence: None)
  Receive Date: 20091125
  Receipt Date: 20091123
  Transmission Date: 20100525
  Serious: Yes (Other)
  Sender: FDA-Public Use
  Company Number: US-PFIZER INC-2004115979

PATIENT
  Sex: Female
  Weight: 65 kg

DRUGS (5)
  1. PROVERA [Suspect]
     Indication: HORMONE REPLACEMENT THERAPY
     Route: 048
  2. PREMARIN [Suspect]
     Indication: HORMONE REPLACEMENT THERAPY
     Dosage: UNK
     Route: 048
     Dates: start: 19890101, end: 19970101
  3. PREMPRO [Suspect]
     Indication: HORMONE REPLACEMENT THERAPY
     Dosage: UNK
     Route: 048
     Dates: start: 19970101, end: 20000101
  4. PREMPHASE 14/14 [Suspect]
     Indication: HORMONE REPLACEMENT THERAPY
     Dosage: UNK
  5. SYNTHROID [Concomitant]
     Indication: THYROID DISORDER
     Dosage: 0.75 MG, UNK
     Dates: start: 19740101

REACTIONS (1)
  - BREAST CANCER FEMALE [None]
